FAERS Safety Report 6826190-9 (Version None)
Quarter: 2010Q3

REPORT INFORMATION
  Report Type: 
  Country: None (occurrence: None)
  Receive Date: 20100709
  Receipt Date: 20100630
  Transmission Date: 20110219
  Serious: Yes (Other)
  Sender: FDA-Public Use
  Company Number: CA-JNJFOC-20100701283

PATIENT
  Sex: Male
  Weight: 101.9 kg

DRUGS (3)
  1. REMICADE [Suspect]
     Indication: COLITIS ULCERATIVE
     Dosage: 18TH DOSE
     Route: 042
  2. REMICADE [Suspect]
     Route: 042
  3. PREVACID [Concomitant]

REACTIONS (1)
  - CARPAL TUNNEL SYNDROME [None]
